FAERS Safety Report 16498510 (Version 1)
Quarter: 2019Q2

REPORT INFORMATION
  Report Type: Spontaneous
  Country: PL (occurrence: PL)
  Receive Date: 20190629
  Receipt Date: 20190629
  Transmission Date: 20190711
  Serious: Yes (Hospitalization, Other)
  Sender: FDA-Public Use
  Company Number: PL-AUROBINDO-AUR-APL-2019-036551

PATIENT

DRUGS (9)
  1. OLANZAPINE FILM COATED TABLETS [Suspect]
     Active Substance: OLANZAPINE
     Dosage: 20 MILLIGRAM, DAILY
     Route: 065
  2. ZYPADHERA [Suspect]
     Active Substance: OLANZAPINE PAMOATE
     Indication: SCHIZOPHRENIA
     Dosage: 300 MILLIGRAM
     Route: 030
  3. DEPAKINE CHRONO [Concomitant]
     Active Substance: VALPROATE SODIUM
     Indication: PRODUCT USED FOR UNKNOWN INDICATION
     Dosage: 600 MILLIGRAM
     Route: 065
  4. OLANZAPINE FILM COATED TABLETS [Suspect]
     Active Substance: OLANZAPINE
     Indication: SCHIZOPHRENIA
     Dosage: 20 MILLIGRAM, DAILY
     Route: 065
  5. OLANZAPINE FILM COATED TABLETS [Suspect]
     Active Substance: OLANZAPINE
     Dosage: 20 MILLIGRAM, DAILY
     Route: 065
     Dates: start: 201310
  6. OLANZAPINE FILM COATED TABLETS [Suspect]
     Active Substance: OLANZAPINE
     Dosage: 15 MILLIGRAM, DAILY
     Route: 065
     Dates: start: 201412
  7. OLANZAPINE FILM COATED TABLETS [Suspect]
     Active Substance: OLANZAPINE
     Dosage: 17.5 MILLIGRAM, DAILY
     Route: 065
     Dates: start: 201506
  8. QUETIAPINE. [Concomitant]
     Active Substance: QUETIAPINE
     Indication: PRODUCT USED FOR UNKNOWN INDICATION
     Dosage: 25 MILLIGRAM, DAILY
     Route: 065
  9. DEPAKINE CHRONO [Concomitant]
     Active Substance: VALPROATE SODIUM
     Dosage: 1000 MILLIGRAM, DAILY
     Route: 065

REACTIONS (9)
  - Somnolence [Unknown]
  - Depressed mood [Recovered/Resolved]
  - Mood swings [Recovered/Resolved]
  - Post-injection delirium sedation syndrome [Recovered/Resolved]
  - Aggression [Recovered/Resolved]
  - Delusion [Unknown]
  - Hypothyroidism [Unknown]
  - Decreased activity [Recovered/Resolved]
  - Asthenia [Recovered/Resolved]

NARRATIVE: CASE EVENT DATE: 201312
